FAERS Safety Report 7076375-4 (Version None)
Quarter: 2010Q4

REPORT INFORMATION
  Report Type: 
  Country: None (occurrence: None)
  Receive Date: 20101021
  Receipt Date: 20101006
  Transmission Date: 20110411
  Serious: Yes (Death)
  Sender: FDA-Public Use
  Company Number: AUR-APL-2010-02250

PATIENT
  Age: 41 Year
  Sex: Male

DRUGS (4)
  1. SERTRALINE HYDROCHLORIDE [Suspect]
  2. CLOZAPINE [Suspect]
     Dosage: 750MG, DAILY,
     Dates: start: 20040101, end: 20080901
  3. AMITRIPTYLINE HCL [Suspect]
  4. LACTUOSE [Concomitant]

REACTIONS (23)
  - ABDOMINAL DISTENSION [None]
  - ANTIPSYCHOTIC DRUG LEVEL INCREASED [None]
  - ASTHENIA [None]
  - BRAIN OEDEMA [None]
  - C-REACTIVE PROTEIN INCREASED [None]
  - CELL DEATH [None]
  - CONSTIPATION [None]
  - CYANOSIS [None]
  - DIARRHOEA [None]
  - DIZZINESS [None]
  - EYES SUNKEN [None]
  - LEUKOCYTOSIS [None]
  - MALAISE [None]
  - MEGACOLON [None]
  - METABOLIC ACIDOSIS [None]
  - MONOCYTOSIS [None]
  - PULMONARY CONGESTION [None]
  - PULMONARY OEDEMA [None]
  - RESPIRATORY ARREST [None]
  - SOMNOLENCE [None]
  - SPLEEN CONGESTION [None]
  - SYNCOPE [None]
  - VOMITING [None]
